FAERS Safety Report 6264229-2 (Version None)
Quarter: 2009Q3

REPORT INFORMATION
  Report Type: 
  Country: None (occurrence: None)
  Receive Date: 20090706
  Receipt Date: 20090219
  Transmission Date: 20100115
  Serious: Yes (Death)
  Sender: FDA-Public Use
  Company Number: 2009020051

PATIENT
  Age: 53 Year
  Sex: Female

DRUGS (6)
  1. CARISOPRODOL [Suspect]
     Indication: NARCOLEPSY
     Dosage: 350 MG (350 MG, AT BEDTIME), ORAL
     Route: 048
  2. XYREM [Suspect]
     Dosage: 7.5 GM (3.75 GM, TWICE PER NIGHT)
  3. TRAMADOL HCL [Suspect]
     Dosage: 1950 MG (650 MG, 3 IN 1 D), ORAL
     Route: 048
  4. GABAPENTIN [Concomitant]
  5. CETIRIZINE [Concomitant]
  6. MODAFINIL [Concomitant]

REACTIONS (1)
  - MULTIPLE DRUG OVERDOSE ACCIDENTAL [None]
